FAERS Safety Report 25213673 (Version 1)
Quarter: 2025Q2

REPORT INFORMATION
  Report Type: Spontaneous
  Country: EG (occurrence: EG)
  Receive Date: 20250418
  Receipt Date: 20250418
  Transmission Date: 20250716
  Serious: Yes (Other)
  Sender: PFIZER
  Company Number: EG-PFIZER INC-PV202500043978

PATIENT
  Age: 58 Year
  Sex: Female
  Weight: 85 kg

DRUGS (8)
  1. CARBOPLATIN [Suspect]
     Active Substance: CARBOPLATIN
     Indication: Chronic myeloid leukaemia
     Dosage: 130 MG, WEEKLY
  2. CARBOPLATIN [Suspect]
     Active Substance: CARBOPLATIN
     Dosage: 130 MG, WEEKLY
     Dates: start: 20250309
  3. PACLITAXEL [Suspect]
     Active Substance: PACLITAXEL
     Indication: Chronic myeloid leukaemia
     Dosage: 130 MG, WEEKLY
  4. PACLITAXEL [Suspect]
     Active Substance: PACLITAXEL
     Dosage: 130 MG, WEEKLY
     Dates: start: 20250309
  5. EMEX [DOMPERIDONE] [Concomitant]
     Indication: Premedication
  6. DEXAMETHASONE [Concomitant]
     Active Substance: DEXAMETHASONE
     Indication: Premedication
  7. PIRAFENE [Concomitant]
     Indication: Premedication
  8. PROTOFIX [Concomitant]
     Indication: Premedication

REACTIONS (7)
  - Tongue oedema [Unknown]
  - Bronchospasm [Unknown]
  - Dyspnoea [Unknown]
  - Salivary hypersecretion [Unknown]
  - Drug hypersensitivity [Unknown]
  - Seizure [Unknown]
  - Off label use [Unknown]
